FAERS Safety Report 8762173 (Version 1)
Quarter: 2012Q4

REPORT INFORMATION
  Report Type: 
  Country: CN (occurrence: CN)
  Receive Date: 20120830
  Receipt Date: 20120830
  Transmission Date: 20130627
  Serious: Yes (Other)
  Sender: FDA-Public Use
  Company Number: CN-ROCHE-CID000000002130291

PATIENT
  Age: 86 Year
  Sex: Female
  Weight: 70 kg

DRUGS (1)
  1. ROCEPHIN [Suspect]
     Indication: HIP ARTHROPLASTY
     Route: 041
     Dates: start: 20090522, end: 20090628

REACTIONS (3)
  - Epidermolysis bullosa [Recovering/Resolving]
  - Pericardial effusion [Unknown]
  - Pleural effusion [Unknown]
